FAERS Safety Report 13540538 (Version 2)
Quarter: 2017Q3

REPORT INFORMATION
  Report Type: Spontaneous
  Country: US (occurrence: US)
  Receive Date: 20170512
  Receipt Date: 20170707
  Transmission Date: 20171127
  Serious: Yes (Hospitalization, Other)
  Sender: FDA-Public Use
  Company Number: US-PFIZER INC-2017203332

PATIENT
  Age: 56 Year
  Sex: Female

DRUGS (4)
  1. DEPO-MEDROL [Suspect]
     Active Substance: METHYLPREDNISOLONE ACETATE
     Indication: OSTEOARTHRITIS
     Dosage: 40 MG, SINGLE, ONCE INTO THE LEFT KNEE
  2. LIDOCAINE HCL [Suspect]
     Active Substance: LIDOCAINE HYDROCHLORIDE
     Indication: ARTHRALGIA
     Dosage: 2 %, SINGLE, ONCE INTO THE LEFT KNEE
     Route: 014
     Dates: start: 20170428
  3. DEPO-MEDROL [Suspect]
     Active Substance: METHYLPREDNISOLONE ACETATE
     Indication: ARTHRALGIA
     Dosage: 40 MG, SINGLE, ONCE INTO THE LEFT KNEE
     Dates: start: 20170428
  4. DEPO-MEDROL [Suspect]
     Active Substance: METHYLPREDNISOLONE ACETATE
     Indication: ARTHRALGIA
     Dosage: 80 MG, UNK
     Route: 014
     Dates: start: 20170428

REACTIONS (4)
  - Staphylococcal infection [Recovered/Resolved]
  - Arthritis bacterial [Recovered/Resolved]
  - Disease progression [Unknown]
  - White blood cell count abnormal [Recovered/Resolved]

NARRATIVE: CASE EVENT DATE: 20170505
